FAERS Safety Report 5426146-7 (Version None)
Quarter: 2007Q3

REPORT INFORMATION
  Report Type: 
  Country: None (occurrence: None)
  Receive Date: 20070827
  Receipt Date: 20070823
  Transmission Date: 20080115
  Serious: Yes (Life-Threatening)
  Sender: FDA-Public Use
  Company Number: US-ELI_LILLY_AND_COMPANY-US200707005353

PATIENT
  Age: 47 Year
  Sex: Female

DRUGS (2)
  1. ZYPREXA [Suspect]
     Indication: PSYCHOTIC DISORDER
     Dosage: 10 MG, UNK
     Route: 030
     Dates: start: 20070601
  2. LORAZEPAM [Concomitant]
     Indication: AGITATION
     Dosage: 2 MG, UNK
     Route: 030
     Dates: start: 20070601

REACTIONS (1)
  - CARDIAC ARREST [None]
